FAERS Safety Report 22275121 (Version 1)
Quarter: 2023Q2

REPORT INFORMATION
  Report Type: Spontaneous
  Country: US (occurrence: US)
  Receive Date: 20230502
  Receipt Date: 20230502
  Transmission Date: 20230721
  Serious: Yes (Death)
  Sender: FDA-Public Use
  Company Number: US-NEUROCRINE BIOSCIENCES INC.-2023NBI03499

PATIENT

DRUGS (2)
  1. INGREZZA [Suspect]
     Active Substance: VALBENAZINE
     Indication: Huntington^s disease
     Dosage: 120 MILLIGRAM, DAILY
     Route: 065
  2. INGREZZA [Suspect]
     Active Substance: VALBENAZINE
     Dosage: 80 MILLIGRAM DAILY
     Route: 065

REACTIONS (4)
  - Huntington^s disease [Fatal]
  - Hepatic enzyme increased [Recovered/Resolved]
  - Off label use [Unknown]
  - Prescribed overdose [Unknown]
